FAERS Safety Report 18784117 (Version 3)
Quarter: 2021Q1

REPORT INFORMATION
  Report Type: Spontaneous
  Country: CN (occurrence: CN)
  Receive Date: 20210125
  Receipt Date: 20210201
  Transmission Date: 20210419
  Serious: Yes (Other)
  Sender: FDA-Public Use
  Company Number: CN-ABBVIE-21K-035-3738048-00

PATIENT
  Age: 33 Year
  Sex: Female

DRUGS (2)
  1. HUMIRA [Suspect]
     Active Substance: ADALIMUMAB
     Indication: ANKYLOSING SPONDYLITIS
  2. HUMIRA [Suspect]
     Active Substance: ADALIMUMAB
     Indication: IRIDOCYCLITIS
     Route: 058
     Dates: start: 2020

REACTIONS (4)
  - Eye infection bacterial [Unknown]
  - Anterior chamber inflammation [Unknown]
  - Purulent discharge [Unknown]
  - Blindness unilateral [Unknown]

NARRATIVE: CASE EVENT DATE: 202101
